FAERS Safety Report 16052773 (Version 2)
Quarter: 2019Q2

REPORT INFORMATION
  Report Type: Spontaneous
  Country: FR (occurrence: FR)
  Receive Date: 20190308
  Receipt Date: 20190401
  Transmission Date: 20190711
  Serious: Yes (Hospitalization, Other)
  Sender: FDA-Public Use
  Company Number: FR-PFIZER INC-2019098347

PATIENT
  Age: 51 Year
  Sex: Female

DRUGS (3)
  1. TOVIAZ [Suspect]
     Active Substance: FESOTERODINE FUMARATE
     Indication: URINARY RETENTION
     Dosage: 4 MG, DAILY
  2. TOVIAZ [Suspect]
     Active Substance: FESOTERODINE FUMARATE
     Dosage: 8 MG, DAILY
     Route: 048
     Dates: end: 20190220
  3. ORAP [Concomitant]
     Active Substance: PIMOZIDE
     Dosage: UNK

REACTIONS (18)
  - Constipation [Unknown]
  - Oropharyngeal pain [Unknown]
  - Confusional state [Unknown]
  - Vision blurred [Unknown]
  - Neuralgia [Unknown]
  - Flatulence [Unknown]
  - Nasal dryness [Unknown]
  - Visual impairment [Unknown]
  - Intervertebral disc protrusion [Unknown]
  - Loss of consciousness [Unknown]
  - Fatigue [Unknown]
  - Dysphonia [Unknown]
  - Malaise [Unknown]
  - Somnolence [Unknown]
  - Dizziness [Unknown]
  - Nervousness [Unknown]
  - Balance disorder [Unknown]
  - Asthenia [Unknown]

NARRATIVE: CASE EVENT DATE: 20190219
